FAERS Safety Report 5614499-6 (Version None)
Quarter: 2008Q1

REPORT INFORMATION
  Report Type: 
  Country: None (occurrence: None)
  Receive Date: 20080205
  Receipt Date: 20080131
  Transmission Date: 20080703
  Serious: Yes (Disabling)
  Sender: FDA-Public Use
  Company Number: NL-MERCK-0802NLD00002

PATIENT
  Age: 55 Year
  Sex: Female

DRUGS (1)
  1. SINGULAIR [Suspect]
     Route: 048

REACTIONS (2)
  - ANXIETY [None]
  - CONFUSIONAL STATE [None]
